FAERS Safety Report 14698133 (Version 1)
Quarter: 2018Q1

REPORT INFORMATION
  Report Type: Report from Study
  Country: BR (occurrence: BR)
  Receive Date: 20180330
  Receipt Date: 20180330
  Transmission Date: 20180509
  Serious: Yes (Other)
  Sender: FDA-Public Use
  Company Number: BR-ROCHE-2093985

PATIENT
  Sex: Female
  Weight: 56 kg

DRUGS (3)
  1. HERCEPTIN [Suspect]
     Active Substance: TRASTUZUMAB
     Indication: BREAST CANCER
     Dosage: EVERY 3 WEEKS
     Route: 065
     Dates: start: 20160607, end: 20180307
  2. HERCEPTIN [Suspect]
     Active Substance: TRASTUZUMAB
     Dosage: WEEKLY
     Route: 050
     Dates: start: 20160607, end: 20180307
  3. TAXOL [Suspect]
     Active Substance: PACLITAXEL
     Indication: BREAST CANCER
     Route: 065
     Dates: start: 20170315, end: 20180306

REACTIONS (2)
  - Disease progression [Unknown]
  - Drug ineffective [Unknown]
